FAERS Safety Report 7341370-4 (Version None)
Quarter: 2011Q1

REPORT INFORMATION
  Report Type: 
  Country: None (occurrence: None)
  Receive Date: 20110309
  Receipt Date: 20100817
  Transmission Date: 20110831
  Serious: Yes (Other)
  Sender: FDA-Public Use
  Company Number: US-BAYER-201014573NA

PATIENT
  Sex: Female
  Weight: 77 kg

DRUGS (4)
  1. ALLEGRA D 24 HOUR [Concomitant]
  2. LORTAB [Concomitant]
     Dosage: UNK
     Dates: start: 20070801, end: 20080601
  3. FOLIC ACID [Concomitant]
     Indication: ANAEMIA
     Dosage: 1 MG, TID
     Dates: start: 20050101
  4. YAZ [Suspect]
     Indication: CONTRACEPTION
     Dosage: AS USED DOSE: UNK
     Route: 048
     Dates: start: 20070601, end: 20080115

REACTIONS (6)
  - CHOLELITHIASIS [None]
  - CHOLECYSTITIS CHRONIC [None]
  - GALLBLADDER DISORDER [None]
  - ASTHENIA [None]
  - FATIGUE [None]
  - PAIN [None]
